FAERS Safety Report 21922367 (Version 2)
Quarter: 2023Q1

REPORT INFORMATION
  Report Type: Spontaneous
  Country: DE (occurrence: DE)
  Receive Date: 20230128
  Receipt Date: 20230220
  Transmission Date: 20230417
  Serious: Yes (Hospitalization)
  Sender: FDA-Public Use
  Company Number: DE-JNJFOC-20230122443

PATIENT
  Sex: Female

DRUGS (13)
  1. LENALIDOMIDE [Suspect]
     Active Substance: LENALIDOMIDE
     Indication: Plasma cell myeloma
     Dosage: 100 MG (LAST DOSE 27 DEC 2022 AND NEXT DOSE 26 JAN 2023)
     Route: 048
     Dates: start: 20221130
  2. DEXAMETHASONE [Suspect]
     Active Substance: DEXAMETHASONE
     Indication: Plasma cell myeloma
     Dosage: 40 MG (LAST DOSE 23 DEC 2022 AND NEXT DOSE 22 JAN 2023)
     Route: 042
     Dates: start: 20221130
  3. DEXAMETHASONE [Suspect]
     Active Substance: DEXAMETHASONE
     Dosage: 40 MG (LAST DOSE 24 DEC 2022 AND NEXT DOSE 23 JAN 2023)
     Route: 048
     Dates: start: 20221208
  4. DEXAMETHASONE [Suspect]
     Active Substance: DEXAMETHASONE
     Dosage: 40 MG (LAST DOSE 05 JAN 2023 AND NEXT DOSE 04 FEB 2023)
     Route: 042
     Dates: start: 20221229
  5. DEXAMETHASONE [Suspect]
     Active Substance: DEXAMETHASONE
     Dosage: 40 MG (LAST DOSE 06 JAN 2023 AND NEXT DOSE 05 FEB 2023)
     Route: 048
     Dates: start: 20221230
  6. BORTEZOMIB [Suspect]
     Active Substance: BORTEZOMIB
     Indication: Plasma cell myeloma
     Dosage: 1.3 MG/M2 (LAST DOSE 12 DEC 2022 AND NEXT DOSE 11 JAN 2023)
     Route: 058
     Dates: start: 20221130
  7. BORTEZOMIB [Suspect]
     Active Substance: BORTEZOMIB
     Dosage: 1.3 MG/M2 (LAST DOSE: 02 JAN 2023)
     Route: 058
     Dates: start: 20221130
  8. BORTEZOMIB [Suspect]
     Active Substance: BORTEZOMIB
     Dosage: 1.3 MG/M2 (LAST DOSE 05 JAN 2023 AND NEXT DOSE 04 FEB 2023)
     Route: 058
     Dates: start: 20221229
  9. THALIDOMIDE [Suspect]
     Active Substance: THALIDOMIDE
     Indication: Plasma cell myeloma
     Dosage: 100 MG (LAST DOSE 08 JAN 2023 AND NEXT DOSE 07 FEB 2023)
     Route: 048
     Dates: start: 20221229
  10. THALIDOMIDE [Suspect]
     Active Substance: THALIDOMIDE
     Dosage: 100 MG (LAST DOSE 08 JAN 2023 AND NEXT DOSE 07 FEB 2023)
     Route: 048
     Dates: start: 20221130
  11. DARATUMUMAB [Suspect]
     Active Substance: DARATUMUMAB
     Indication: Plasma cell myeloma
     Dosage: 16 MG/KG (LAST DOSE 23 JAN 2023 AND NEXT DOSE 22 FEB 2023)
     Route: 042
     Dates: start: 20221207
  12. DARATUMUMAB [Suspect]
     Active Substance: DARATUMUMAB
     Dosage: 16 MG/KG (LAST DOSE 05 JAN 2023 AND NEXT DOSE 04 FEB 2023)
     Route: 042
     Dates: start: 20221130
  13. DARATUMUMAB [Suspect]
     Active Substance: DARATUMUMAB
     Dosage: 16 MG/KG (LAST DOSE 05 JAN 2023 AND NEXT DOSE 04 FEB 2023)
     Route: 042
     Dates: start: 20221229

REACTIONS (1)
  - Dermatitis [Recovered/Resolved]

NARRATIVE: CASE EVENT DATE: 20230109
